FAERS Safety Report 13929837 (Version 2)
Quarter: 2018Q1

REPORT INFORMATION
  Report Type: Spontaneous
  Country: US (occurrence: US)
  Receive Date: 20170901
  Receipt Date: 20180309
  Transmission Date: 20180508
  Serious: No
  Sender: FDA-Public Use
  Company Number: US-ASTRAZENECA-2017SE89024

PATIENT
  Sex: Female

DRUGS (1)
  1. SYMBICORT [Suspect]
     Active Substance: BUDESONIDE\FORMOTEROL FUMARATE DIHYDRATE
     Dosage: 80/4.5 MCG TWO INHALATIONS TWICE DAILY
     Route: 055

REACTIONS (4)
  - Dyspnoea [Unknown]
  - Product quality issue [Unknown]
  - Off label use [Unknown]
  - Product use issue [Unknown]
